FAERS Safety Report 5292221-3 (Version None)
Quarter: 2007Q2

REPORT INFORMATION
  Report Type: 
  Country: None (occurrence: None)
  Receive Date: 20070410
  Receipt Date: 20070330
  Transmission Date: 20071010
  Serious: Yes (Hospitalization)
  Sender: FDA-Public Use
  Company Number: US-ROCHE-490531

PATIENT
  Age: 54 Year
  Sex: Male
  Weight: 88 kg

DRUGS (9)
  1. PEG-INTERFERON ALFA 2A (RO 25-8310) [Suspect]
     Indication: HEPATITIS C
     Route: 058
     Dates: start: 20061017
  2. RIBAVIRIN [Suspect]
     Indication: HEPATITIS C
     Route: 048
     Dates: start: 20061017
  3. HYDROCHLOROTHIAZIDE [Concomitant]
     Dosage: APPROXIMATE DURATION OF USE = 6 YEARS
  4. LODINE [Concomitant]
     Dosage: APPROXIMATE DURATION OF USE = 1 YEAR
  5. CENTRUM [Concomitant]
     Dosage: APPROXIMATE DURATION OF USE = 14 YEARS
  6. OXYCODONE HCL [Concomitant]
     Dosage: APPROXIMATE DURATION OF USE = 1 YEAR
  7. OXYCONTIN [Concomitant]
     Dosage: APPROXIMATE DURATION OF USE = 7 MONTHS
  8. VIAGRA [Concomitant]
     Dosage: APPROXIMATE DURATION OF USE = 6.5 YEARS
  9. NEUPOGEN [Concomitant]
     Dosage: APPROXIMATE DURATION OF USE = 1 MONTH

REACTIONS (1)
  - DEEP VEIN THROMBOSIS [None]
